FAERS Safety Report 7057470-2 (Version None)
Quarter: 2010Q4

REPORT INFORMATION
  Report Type: 
  Country: None (occurrence: None)
  Receive Date: 20101022
  Receipt Date: 20101011
  Transmission Date: 20110411
  Serious: Yes (Other)
  Sender: FDA-Public Use
  Company Number: PHHY2010US68683

PATIENT
  Sex: Female
  Weight: 75 kg

DRUGS (11)
  1. EXJADE [Suspect]
     Dosage: 1500 MG, QD
     Route: 048
     Dates: start: 20100726, end: 20100901
  2. VITAMIN B-12 [Concomitant]
  3. VITAMIN B6 [Concomitant]
  4. ASCORBIC ACID [Concomitant]
  5. FOLIC ACID [Concomitant]
  6. LORTAB [Concomitant]
  7. PRILOSEC [Concomitant]
  8. ASPIRIN [Concomitant]
  9. MULTIVITAMIN ^LAPPE^ [Concomitant]
  10. CALCIUM [Concomitant]
  11. IMODIUM A-D [Concomitant]

REACTIONS (2)
  - BLOOD PRESSURE SYSTOLIC INCREASED [None]
  - VISION BLURRED [None]
